FAERS Safety Report 6673782-6 (Version None)
Quarter: 2010Q2

REPORT INFORMATION
  Report Type: 
  Country: None (occurrence: None)
  Receive Date: 20100407
  Receipt Date: 20100329
  Transmission Date: 20101027
  Serious: Yes (Other)
  Sender: FDA-Public Use
  Company Number: 2010SP013235

PATIENT
  Age: 18 Year
  Sex: Female
  Weight: 84.8226 kg

DRUGS (1)
  1. IMPLANON [Suspect]
     Indication: DRUG USE FOR UNKNOWN INDICATION
     Dosage: 1 DF
     Dates: start: 20100114

REACTIONS (2)
  - IMPLANT SITE PAIN [None]
  - PETECHIAE [None]
